FAERS Safety Report 10912494 (Version 1)
Quarter: 2015Q1

REPORT INFORMATION
  Report Type: Spontaneous
  Country: US (occurrence: None)
  Receive Date: 20150310
  Receipt Date: 20150310
  Transmission Date: 20150721
  Serious: No
  Sender: FDA-Public Use
  Company Number: None

PATIENT
  Sex: Female

DRUGS (1)
  1. HUMIRA [Suspect]
     Active Substance: ADALIMUMAB
     Dosage: SQ EVERY TWO WEEKS
     Route: 058
     Dates: start: 20141028

REACTIONS (2)
  - Dyspnoea [None]
  - Weight increased [None]
